FAERS Safety Report 7459874-2 (Version None)
Quarter: 2011Q2

REPORT INFORMATION
  Report Type: 
  Country: None (occurrence: None)
  Receive Date: 20110505
  Receipt Date: 20110502
  Transmission Date: 20111010
  Serious: Yes (Hospitalization)
  Sender: FDA-Public Use
  Company Number: NO-PFIZER INC-2007091919

PATIENT
  Age: 75 Year
  Sex: Male

DRUGS (8)
  1. FOLIC ACID [Concomitant]
     Dosage: 1 MG, 1X/DAY
  2. METHOTREXATE SODIUM [Suspect]
     Indication: RHEUMATOID ARTHRITIS
     Dosage: 12.5 MG, WEEKLY
     Dates: start: 20020101, end: 20071001
  3. ADALAT [Concomitant]
     Dosage: 30 MG, 1X/DAY
  4. ZOCOR [Concomitant]
     Dosage: 20 MG, 1X/DAY
  5. VESICARE [Concomitant]
     Dosage: 5 MG, 1X/DAY
  6. ALBYL-E [Concomitant]
     Indication: CORONARY ARTERY DISEASE
     Route: 048
  7. SULFASALAZINE [Suspect]
     Indication: RHEUMATOID ARTHRITIS
     Dosage: 500 MG, 2X/DAY
     Route: 048
     Dates: end: 20070101
  8. VOLTAREN [Suspect]
     Indication: RHEUMATOID ARTHRITIS
     Dosage: 50 MG, 3X/DAY
     Dates: start: 20020101, end: 20071001

REACTIONS (2)
  - PANCYTOPENIA [None]
  - ANAEMIA [None]
